FAERS Safety Report 4699661-1 (Version None)
Quarter: 2005Q2

REPORT INFORMATION
  Report Type: 
  Country: None (occurrence: None)
  Receive Date: 20050623
  Receipt Date: 20040429
  Transmission Date: 20051028
  Serious: Yes (Hospitalization)
  Sender: FDA-Public Use
  Company Number: 2004028691

PATIENT
  Age: 65 Year
  Sex: Male

DRUGS (2)
  1. LIPITOR [Suspect]
     Indication: HYPERCHOLESTEROLAEMIA
     Dosage: 40 MG (DAILY), ORAL
     Route: 048
     Dates: start: 20020101, end: 20040301
  2. SOTALOL HCL [Concomitant]

REACTIONS (6)
  - ARRHYTHMIA [None]
  - CONDITION AGGRAVATED [None]
  - DECREASED APPETITE [None]
  - DYSPEPSIA [None]
  - EXTRASYSTOLES [None]
  - WEIGHT DECREASED [None]
